FAERS Safety Report 13032368 (Version 1)
Quarter: 2016Q4

REPORT INFORMATION
  Report Type: Spontaneous
  Country: US (occurrence: US)
  Receive Date: 20161215
  Receipt Date: 20161215
  Transmission Date: 20170207
  Serious: Yes (Hospitalization, Other)
  Sender: FDA-Public Use
  Company Number: US-PFIZER INC-2016574772

PATIENT
  Age: 60 Year
  Sex: Female
  Weight: 47.9 kg

DRUGS (4)
  1. ARAVA [Suspect]
     Active Substance: LEFLUNOMIDE
     Dosage: UNK
  2. PREDNISONE. [Suspect]
     Active Substance: PREDNISONE
     Dosage: UNK
  3. PRAVASTATIN. [Concomitant]
     Active Substance: PRAVASTATIN
     Indication: BLOOD CHOLESTEROL INCREASED
     Dosage: 20 MG, ONCE IN EVENING
  4. CELEBREX [Suspect]
     Active Substance: CELECOXIB
     Indication: RHEUMATOID ARTHRITIS
     Dosage: UNK
     Dates: start: 200010

REACTIONS (7)
  - Sepsis [Unknown]
  - Cardiac arrest [Unknown]
  - Malaise [Unknown]
  - Posterior reversible encephalopathy syndrome [Unknown]
  - Pneumothorax [Unknown]
  - Kidney infection [Unknown]
  - Brain oedema [Unknown]
